FAERS Safety Report 11512277 (Version 1)
Quarter: 2015Q3

REPORT INFORMATION
  Report Type: Spontaneous
  Country: US (occurrence: US)
  Receive Date: 20150916
  Receipt Date: 20150916
  Transmission Date: 20151125
  Serious: Yes (Hospitalization)
  Sender: FDA-Public Use
  Company Number: US-ACCORD-033651

PATIENT
  Sex: Female

DRUGS (1)
  1. ACCORD QUETIAPINE [Suspect]
     Active Substance: QUETIAPINE
     Indication: SLEEP TERROR
     Dosage: STRENGTH: 25 MG
     Dates: start: 20150410, end: 20150721

REACTIONS (8)
  - Fall [Unknown]
  - Gait disturbance [Unknown]
  - Joint dislocation [Not Recovered/Not Resolved]
  - Weight decreased [Unknown]
  - Neck pain [Not Recovered/Not Resolved]
  - Off label use [Unknown]
  - Spinal pain [Not Recovered/Not Resolved]
  - Dysphagia [Not Recovered/Not Resolved]

NARRATIVE: CASE EVENT DATE: 201506
